APPROVED DRUG PRODUCT: BUDESONIDE
Active Ingredient: BUDESONIDE
Strength: 2MG/ACTUATION
Dosage Form/Route: AEROSOL, FOAM;RECTAL
Application: A215328 | Product #001 | TE Code: AB
Applicant: PADAGIS ISRAEL PHARMACEUTICALS LTD
Approved: Apr 12, 2023 | RLD: No | RS: Yes | Type: RX